FAERS Safety Report 9456010 (Version 2)
Quarter: 2013Q3

REPORT INFORMATION
  Report Type: Spontaneous
  Country: IT (occurrence: IT)
  Receive Date: 20130813
  Receipt Date: 20130822
  Transmission Date: 20140515
  Serious: Yes (Hospitalization)
  Sender: FDA-Public Use
  Company Number: IT-TEVA-406017ISR

PATIENT
  Age: 72 Year
  Sex: Female

DRUGS (2)
  1. DICLOFENAC [Suspect]
     Dosage: 1 DOSAGE FORMS DAILY;
     Route: 030
     Dates: start: 20130319, end: 20130423
  2. IBUPROFEN [Suspect]
     Indication: OSTEOARTHRITIS
     Dosage: 600 MILLIGRAM DAILY;
     Route: 048
     Dates: start: 20120426, end: 20130426

REACTIONS (4)
  - Melaena [Recovered/Resolved]
  - Hepatic cirrhosis [Unknown]
  - Arthralgia [Unknown]
  - Gastric ulcer [Unknown]
